FAERS Safety Report 16287067 (Version 1)
Quarter: 2019Q2

REPORT INFORMATION
  Report Type: Spontaneous
  Country: PL (occurrence: PL)
  Receive Date: 20190508
  Receipt Date: 20190508
  Transmission Date: 20190711
  Serious: Yes (Hospitalization)
  Sender: FDA-Public Use
  Company Number: PL-ROCHE-2314051

PATIENT
  Age: 76 Year
  Sex: Female

DRUGS (1)
  1. ACTILYSE [Suspect]
     Active Substance: ALTEPLASE
     Indication: ISCHAEMIC STROKE
     Dosage: DOSE: 0.9 (007) (1 IN 1 D)
     Route: 042
     Dates: start: 20160613, end: 20160613

REACTIONS (1)
  - Hypotonia [Recovered/Resolved]

NARRATIVE: CASE EVENT DATE: 20160613
